FAERS Safety Report 13989943 (Version 1)
Quarter: 2017Q3

REPORT INFORMATION
  Report Type: Spontaneous
  Country: US (occurrence: None)
  Receive Date: 20170920
  Receipt Date: 20170920
  Transmission Date: 20171128
  Serious: Yes (Death, Hospitalization)
  Sender: FDA-Public Use
  Company Number: None

PATIENT
  Age: 43 Year
  Sex: Female
  Weight: 39.4 kg

DRUGS (5)
  1. CYTARABINE. [Suspect]
     Active Substance: CYTARABINE
     Dates: end: 20170825
  2. MERCAPTOPURINE. [Suspect]
     Active Substance: MERCAPTOPURINE
     Dates: end: 20170828
  3. METHOTREXATE. [Suspect]
     Active Substance: METHOTREXATE
     Dates: end: 20170809
  4. ONCASPAR [Suspect]
     Active Substance: PEGASPARGASE
     Dates: end: 20170801
  5. CYCLOPHOSPHAMIDE. [Suspect]
     Active Substance: CYCLOPHOSPHAMIDE
     Dates: end: 20170815

REACTIONS (14)
  - Tachycardia [None]
  - Pneumonia [None]
  - Respiratory failure [None]
  - Loss of consciousness [None]
  - Multiple organ dysfunction syndrome [None]
  - Dialysis [None]
  - Hypotension [None]
  - Respiratory tract haemorrhage [None]
  - Supraventricular tachycardia [None]
  - Cardiac arrest [None]
  - Renal failure [None]
  - Bacillus test positive [None]
  - Pleuritic pain [None]
  - Hyperbilirubinaemia [None]

NARRATIVE: CASE EVENT DATE: 20170902
